FAERS Safety Report 13206069 (Version 3)
Quarter: 2017Q2

REPORT INFORMATION
  Report Type: Spontaneous
  Country: US (occurrence: US)
  Receive Date: 20170209
  Receipt Date: 20170510
  Transmission Date: 20170830
  Serious: Yes (Other)
  Sender: FDA-Public Use
  Company Number: US-TEVA-733292ACC

PATIENT
  Age: 67 Year
  Sex: Female

DRUGS (9)
  1. TOLTERODINE [Concomitant]
     Active Substance: TOLTERODINE
  2. MYRBETRIQ [Concomitant]
     Active Substance: MIRABEGRON
  3. MECLIZINE [Concomitant]
     Active Substance: MECLIZINE HYDROCHLORIDE
  4. COPAXONE [Suspect]
     Active Substance: GLATIRAMER ACETATE
     Route: 058
     Dates: start: 201403
  5. SYNTHROID [Concomitant]
     Active Substance: LEVOTHYROXINE SODIUM
  6. TRILEPTAL [Concomitant]
     Active Substance: OXCARBAZEPINE
  7. COPAXONE [Suspect]
     Active Substance: GLATIRAMER ACETATE
     Indication: MULTIPLE SCLEROSIS
     Route: 058
     Dates: start: 20080701
  8. ZOCOR [Concomitant]
     Active Substance: SIMVASTATIN
  9. CELEXA [Concomitant]
     Active Substance: CITALOPRAM HYDROBROMIDE

REACTIONS (4)
  - Limb discomfort [Unknown]
  - Multiple sclerosis relapse [Unknown]
  - Motor dysfunction [Not Recovered/Not Resolved]
  - Fall [Unknown]

NARRATIVE: CASE EVENT DATE: 201703
